FAERS Safety Report 14829880 (Version 1)
Quarter: 2018Q2

REPORT INFORMATION
  Report Type: Spontaneous
  Country: GB (occurrence: GB)
  Receive Date: 20180430
  Receipt Date: 20180430
  Transmission Date: 20180711
  Serious: Yes (Other)
  Sender: FDA-Public Use
  Company Number: GB-EDENBRIDGE PHARMACEUTICALS, LLC-GB-2018EDE000086

PATIENT
  Age: 53 Year
  Sex: Female

DRUGS (7)
  1. PREDNISOLONE SODIUM PHOSPHATE. [Suspect]
     Active Substance: PREDNISOLONE SODIUM PHOSPHATE
     Dosage: LESS THAN 5 MG/DAY
     Route: 048
     Dates: start: 2003
  2. TRIAMCINOLONE [Suspect]
     Active Substance: TRIAMCINOLONE
     Indication: IRIDOCYCLITIS
     Dosage: 40 MG, UNK
     Dates: start: 2003
  3. MYCOPHENOLATE MOFETIL. [Concomitant]
     Active Substance: MYCOPHENOLATE MOFETIL
     Indication: IRIDOCYCLITIS
     Dosage: 1.25 G, BID
     Dates: start: 2009, end: 2011
  4. TACROLIMUS. [Concomitant]
     Active Substance: TACROLIMUS
     Indication: IRIDOCYCLITIS
     Dosage: 2 MG, BID
     Dates: start: 2009, end: 2011
  5. AZATHIOPRINE. [Concomitant]
     Active Substance: AZATHIOPRINE
     Indication: IRIDOCYCLITIS
     Dosage: 100 MG, BID
     Dates: start: 2011, end: 2011
  6. PREDNISOLONE SODIUM PHOSPHATE. [Suspect]
     Active Substance: PREDNISOLONE SODIUM PHOSPHATE
     Indication: IRIDOCYCLITIS
     Dosage: 10 MG, QD
     Route: 048
     Dates: start: 2003, end: 2003
  7. METHOTREXATE. [Concomitant]
     Active Substance: METHOTREXATE
     Indication: IRIDOCYCLITIS
     Dosage: 15 MG/WEEK
     Dates: start: 2011

REACTIONS (1)
  - Diabetes mellitus [Recovering/Resolving]
